FAERS Safety Report 9281184 (Version 2)
Quarter: 2013Q3

REPORT INFORMATION
  Report Type: Report from Study
  Country: US (occurrence: US)
  Receive Date: 20130509
  Receipt Date: 20130717
  Transmission Date: 20140515
  Serious: Yes (Other)
  Sender: FDA-Public Use
  Company Number: PHEH2013US010127

PATIENT
  Sex: Female

DRUGS (3)
  1. NEORAL [Suspect]
     Dosage: 100 MG, BID
     Route: 048
  2. D.H.E. 45 [Concomitant]
  3. ANTIHYPERTENSIVE DRUGS [Concomitant]

REACTIONS (6)
  - Vitamin B12 deficiency [Unknown]
  - Vitamin B1 deficiency [Unknown]
  - Amnesia [Unknown]
  - Aphasia [Unknown]
  - Headache [Unknown]
  - Blood pressure increased [Unknown]
